FAERS Safety Report 18921870 (Version 1)
Quarter: 2021Q1

REPORT INFORMATION
  Report Type: Spontaneous
  Country: US (occurrence: US)
  Receive Date: 20210219
  Receipt Date: 20210219
  Transmission Date: 20210420
  Serious: Yes (Hospitalization, Disabling)
  Sender: FDA-Public Use
  Company Number: None

PATIENT
  Age: 56 Year
  Sex: Female
  Weight: 49.5 kg

DRUGS (3)
  1. PROGESTERONE. [Concomitant]
     Active Substance: PROGESTERONE
  2. CIPROFLOXACIN HCL [Suspect]
     Active Substance: CIPROFLOXACIN HYDROCHLORIDE
     Indication: URINARY TRACT INFECTION
     Dosage: ?          QUANTITY:1 TABLET(S);?
     Route: 048
     Dates: start: 20190909, end: 20190909
  3. TESTOSTERONE. [Concomitant]
     Active Substance: TESTOSTERONE

REACTIONS (9)
  - Paraesthesia [None]
  - Asthenia [None]
  - Weight decreased [None]
  - Fatigue [None]
  - Anxiety [None]
  - Tendon disorder [None]
  - Tremor [None]
  - Abdominal pain [None]
  - Myalgia [None]

NARRATIVE: CASE EVENT DATE: 20190910
